FAERS Safety Report 20144831 (Version 1)
Quarter: 2021Q4

REPORT INFORMATION
  Report Type: Spontaneous
  Country: US (occurrence: US)
  Receive Date: 20211203
  Receipt Date: 20211203
  Transmission Date: 20220303
  Serious: Yes (Hospitalization)
  Sender: FDA-Public Use
  Company Number: US-JNJFOC-20211153948

PATIENT
  Age: 33 Year
  Sex: Male
  Weight: 86 kg

DRUGS (1)
  1. TYLENOL PM [Suspect]
     Active Substance: ACETAMINOPHEN\DIPHENHYDRAMINE
     Indication: Suicide attempt
     Dosage: (ACETAMINOPHEN 500 MG AND DIPHENHYDRAMINE HYDROCHLORIDE 25 MG) FOR 6 MONTHS AND HAD TAKEN SINGLE DOS
     Route: 048
     Dates: end: 19991026

REACTIONS (4)
  - Suicide attempt [Recovered/Resolved]
  - Blood urea increased [Recovered/Resolved]
  - Acute hepatic failure [Recovered/Resolved]
  - Intentional overdose [Recovered/Resolved]
